FAERS Safety Report 12388284 (Version 6)
Quarter: 2016Q4

REPORT INFORMATION
  Report Type: Report from Study
  Country: CO (occurrence: CO)
  Receive Date: 20160520
  Receipt Date: 20161004
  Transmission Date: 20170207
  Serious: Yes (Other)
  Sender: FDA-Public Use
  Company Number: PHHY2016CO068044

PATIENT
  Age: 63 Year
  Sex: Male
  Weight: 72 kg

DRUGS (1)
  1. COSENTYX [Suspect]
     Active Substance: SECUKINUMAB
     Indication: PSORIASIS
     Dosage: 300 MG, QMO
     Route: 058
     Dates: start: 20160227

REACTIONS (12)
  - Influenza [Recovered/Resolved]
  - Ear discomfort [Recovering/Resolving]
  - Pyrexia [Recovered/Resolved]
  - Psychiatric symptom [Unknown]
  - Obstructive airways disorder [Recovering/Resolving]
  - Deafness unilateral [Recovering/Resolving]
  - Immunodeficiency [Recovering/Resolving]
  - Chills [Unknown]
  - Influenza [Recovered/Resolved]
  - Headache [Unknown]
  - Pulmonary pain [Recovered/Resolved]
  - Pyrexia [Unknown]

NARRATIVE: CASE EVENT DATE: 20160513
